FAERS Safety Report 5713590-3 (Version None)
Quarter: 2008Q2

REPORT INFORMATION
  Report Type: 
  Country: None (occurrence: None)
  Receive Date: 20080422
  Receipt Date: 20080409
  Transmission Date: 20081010
  Serious: Yes (Death, Hospitalization, Other)
  Sender: FDA-Public Use
  Company Number: US-ABBOTT-08P-163-0445673-00

PATIENT
  Age: 44 Year
  Sex: Male
  Weight: 65.83 kg

DRUGS (10)
  1. RITONAVIR SOFT GELATIN CAPSULES [Suspect]
     Indication: HIV INFECTION
     Route: 048
     Dates: start: 20061018, end: 20071219
  2. ATAZANAVIR SULFATE [Concomitant]
     Indication: HIV INFECTION
     Route: 048
     Dates: start: 20061010, end: 20071219
  3. TRUVADA [Concomitant]
     Indication: HIV INFECTION
     Route: 048
     Dates: start: 20061018, end: 20071219
  4. ABACAVIR W/LAMIVUDINE [Concomitant]
     Indication: HIV INFECTION
     Route: 048
     Dates: start: 20061018, end: 20071219
  5. LISINOPRIL [Concomitant]
     Indication: DRUG USE FOR UNKNOWN INDICATION
  6. CITALOPRAM HYDROBROMIDE [Concomitant]
     Indication: DRUG USE FOR UNKNOWN INDICATION
  7. CLONAZEPAM [Concomitant]
     Indication: DRUG USE FOR UNKNOWN INDICATION
  8. FINASTERIDE [Concomitant]
     Indication: DRUG USE FOR UNKNOWN INDICATION
  9. TRAZODONE HCL [Concomitant]
     Indication: DRUG USE FOR UNKNOWN INDICATION
  10. DOXAZOSIN MESYLATE [Concomitant]
     Indication: DRUG USE FOR UNKNOWN INDICATION

REACTIONS (5)
  - AIDS RELATED COMPLICATION [None]
  - DEPRESSION [None]
  - DRUG INTERACTION [None]
  - OVERDOSE [None]
  - PNEUMONIA [None]
